FAERS Safety Report 13704369 (Version 1)
Quarter: 2017Q2

REPORT INFORMATION
  Report Type: Spontaneous
  Country: US (occurrence: US)
  Receive Date: 20170630
  Receipt Date: 20170630
  Transmission Date: 20170830
  Serious: No
  Sender: FDA-Public Use
  Company Number: US-ENDO PHARMACEUTICALS INC-2016-007297

PATIENT
  Age: 30 Year
  Sex: Male
  Weight: 95 kg

DRUGS (4)
  1. LORAZEPAM TABLETS 2MG [Suspect]
     Active Substance: LORAZEPAM
     Indication: DEPRESSION
  2. LORAZEPAM TABLETS 2MG [Suspect]
     Active Substance: LORAZEPAM
     Indication: ANXIETY
     Dosage: 1 DF, TID
     Dates: start: 201504
  3. LORAZEPAM TABLETS 0.5MG [Suspect]
     Active Substance: LORAZEPAM
     Indication: DEPRESSION
  4. LORAZEPAM TABLETS 0.5MG [Suspect]
     Active Substance: LORAZEPAM
     Indication: ANXIETY
     Dosage: 1 DF, TID
     Route: 048
     Dates: start: 201504

REACTIONS (7)
  - Withdrawal syndrome [Not Recovered/Not Resolved]
  - Wrong technique in product usage process [Unknown]
  - Skin burning sensation [None]
  - Pollakiuria [None]
  - Vision blurred [None]
  - Tinnitus [None]
  - Product physical issue [Unknown]

NARRATIVE: CASE EVENT DATE: 20161208
